FAERS Safety Report 11837069 (Version 1)
Quarter: 2015Q4

REPORT INFORMATION
  Report Type: Spontaneous
  Country: GB (occurrence: GB)
  Receive Date: 20151215
  Receipt Date: 20151215
  Transmission Date: 20160305
  Serious: Yes (Other)
  Sender: FDA-Public Use
  Company Number: GB-JNJFOC-20150922267

PATIENT
  Age: 44 Year
  Sex: Female

DRUGS (1)
  1. SIMPONI [Suspect]
     Active Substance: GOLIMUMAB
     Indication: PRODUCT USED FOR UNKNOWN INDICATION
     Route: 058
     Dates: end: 201508

REACTIONS (4)
  - Cholecystectomy [Unknown]
  - Surgery [Unknown]
  - Malaise [Unknown]
  - Obesity surgery [Unknown]

NARRATIVE: CASE EVENT DATE: 201508
